FAERS Safety Report 9056227 (Version 1)
Quarter: 2013Q1

REPORT INFORMATION
  Report Type: Report from Study
  Country: CA (occurrence: CA)
  Receive Date: 20130205
  Receipt Date: 20130205
  Transmission Date: 20140127
  Serious: Yes (Hospitalization)
  Sender: FDA-Public Use
  Company Number: CA-JNJFOC-20130115540

PATIENT
  Age: 32 None
  Sex: Male
  Weight: 36.29 kg

DRUGS (1)
  1. REMICADE [Suspect]
     Indication: COLITIS ULCERATIVE
     Route: 042
     Dates: start: 201203

REACTIONS (2)
  - Road traffic accident [Recovering/Resolving]
  - Sternal fracture [Recovering/Resolving]
